FAERS Safety Report 5165321-6 (Version None)
Quarter: 2006Q4

REPORT INFORMATION
  Report Type: 
  Country: None (occurrence: None)
  Receive Date: 20061206
  Receipt Date: 20061122
  Transmission Date: 20070319
  Serious: Yes (Hospitalization)
  Sender: FDA-Public Use
  Company Number: PHHO2006JP19976

PATIENT
  Age: 60 Year
  Sex: Female

DRUGS (7)
  1. DIOVAN [Suspect]
     Indication: HYPERTENSION
     Dosage: 80 MG QD
     Route: 048
     Dates: start: 20040302
  2. SUNRYTHM [Concomitant]
  3. MEVALOTIN [Concomitant]
  4. PURSENNID [Concomitant]
  5. ASPIRIN [Concomitant]
  6. ADALAT [Concomitant]
  7. ALDACTONE [Concomitant]

REACTIONS (1)
  - BLOOD PRESSURE INCREASED [None]
